FAERS Safety Report 8341408-1 (Version None)
Quarter: 2012Q2

REPORT INFORMATION
  Report Type: 
  Country: None (occurrence: None)
  Receive Date: 20120507
  Receipt Date: 20120427
  Transmission Date: 20120825
  Serious: Yes (Other)
  Sender: FDA-Public Use
  Company Number: BR-PFIZER INC-2012057926

PATIENT
  Age: 61 Year
  Sex: Male
  Weight: 77 kg

DRUGS (9)
  1. BROMAZEPAM [Concomitant]
     Dosage: 3 MG, AT NIGHT
  2. FLUOXETINE [Concomitant]
     Dosage: 20 MG, AT NIGHT
  3. CALCIUM CARBONATE [Concomitant]
     Dosage: UNK
  4. SUTENT [Suspect]
     Indication: RENAL CANCER
  5. SUTENT [Suspect]
     Indication: METASTATIC RENAL CELL CARCINOMA
     Dosage: 50 MG, 1X/DAY (CYCLE 4 PER 2)
     Route: 048
     Dates: start: 20120213
  6. OMEPRAZOLE [Concomitant]
     Dosage: 20 MG, 1X/DAY
  7. VITAMIN C [Concomitant]
     Dosage: 200 MG, 1X/DAY
  8. COMPLEX B FORTE [Concomitant]
     Dosage: UNK, 1 DAILY
  9. FOLIC ACID [Concomitant]
     Dosage: UNK, 1 DAILY

REACTIONS (9)
  - PAIN IN EXTREMITY [None]
  - ANAL HAEMORRHAGE [None]
  - ORAL DISCOMFORT [None]
  - DECREASED APPETITE [None]
  - DIARRHOEA [None]
  - HAEMORRHOIDS [None]
  - TOOTH DISCOLOURATION [None]
  - ABDOMINAL PAIN UPPER [None]
  - APHTHOUS STOMATITIS [None]
